FAERS Safety Report 7343833-4 (Version None)
Quarter: 2011Q1

REPORT INFORMATION
  Report Type: 
  Country: None (occurrence: None)
  Receive Date: 20110310
  Receipt Date: 20110308
  Transmission Date: 20110831
  Serious: Yes (Other)
  Sender: FDA-Public Use
  Company Number: IT-ROCHE-749947

PATIENT
  Sex: Female

DRUGS (3)
  1. RIBAVIRIN [Suspect]
     Dosage: DOSE: 800, FREQUENCY: DAILY.
     Route: 065
     Dates: start: 20101016, end: 20101215
  2. MEDROL [Concomitant]
     Indication: NEURODERMATITIS
     Route: 048
  3. PEG-INTRON [Suspect]
     Dosage: DOSE: 80. FREQUENCY: WEEKLY.
     Route: 065
     Dates: start: 20101016, end: 20101215

REACTIONS (2)
  - RETINAL HAEMORRHAGE [None]
  - HYPERTENSION [None]
